FAERS Safety Report 10365926 (Version 1)
Quarter: 2014Q1

REPORT INFORMATION
  Report Type: Spontaneous
  Country: US (occurrence: None)
  Receive Date: 20140306
  Receipt Date: 20140306
  Transmission Date: 20141002
  Serious: Yes (Hospitalization)
  Sender: FDA-Public Use
  Company Number: 163-21880-13092107

PATIENT
  Age: 62 Year
  Sex: Male

DRUGS (8)
  1. REVLIMID (LENALIDOMIDE) (5 MILLIGRAM, CAPSULES) [Suspect]
     Indication: LYMPHOCYTIC LEUKAEMIA
     Route: 048
     Dates: start: 201005
  2. REVLIMID (LENALIDOMIDE) (5 MILLIGRAM, CAPSULES) [Suspect]
     Indication: PLASMA CELL MYELOMA
     Route: 048
     Dates: start: 201005
  3. METOPROLOL SUCCINATE (METOPROLOL SUCCINATE) (TABLETS) [Concomitant]
  4. PREDNISONE (PREDNISONE) (TABLETS) [Concomitant]
  5. IPRATROPIUM (IPRATROPIUM) (NASAL DROPS (INCLUDING NASAL SPRAY)) [Concomitant]
  6. NEXIUM (ESOMEPRAZOLE) (CAPSULES) [Concomitant]
  7. PROCHLORPERAZINE (PROCHLORPERAZINE) (TABLETS) [Concomitant]
  8. LORAZEPAM (LORAZEPAM) (TABLETS) [Concomitant]

REACTIONS (5)
  - Tumour flare [None]
  - Epistaxis [None]
  - Platelet count decreased [None]
  - Rash macular [None]
  - Diarrhoea [None]
